FAERS Safety Report 24156751 (Version 1)
Quarter: 2024Q3

REPORT INFORMATION
  Report Type: Spontaneous
  Country: US (occurrence: None)
  Receive Date: 20240730
  Receipt Date: 20240730
  Transmission Date: 20241016
  Serious: No
  Sender: Public
  Company Number: None

PATIENT
  Age: 76 Year
  Sex: Female

DRUGS (1)
  1. MIEBO [Suspect]
     Active Substance: PERFLUOROHEXYLOCTANE
     Dosage: 1 GTT DROP(S) 4 TIMES A DAY OPHTHALMIC?
     Route: 047

REACTIONS (3)
  - Eye irritation [None]
  - Ocular hyperaemia [None]
  - Lacrimation increased [None]

NARRATIVE: CASE EVENT DATE: 20240730
